FAERS Safety Report 8327119-7 (Version None)
Quarter: 2012Q2

REPORT INFORMATION
  Report Type: 
  Country: None (occurrence: None)
  Receive Date: 20120501
  Receipt Date: 20120328
  Transmission Date: 20120825
  Serious: Yes (Other)
  Sender: FDA-Public Use
  Company Number: US-SANOFI-AVENTIS-2012SA022211

PATIENT
  Age: 67 Year
  Sex: Female
  Weight: 84.54 kg

DRUGS (9)
  1. LORAZEPAM [Concomitant]
     Indication: SLEEP DISORDER
     Dates: start: 20100101
  2. WARFARIN SODIUM [Concomitant]
  3. LANTUS [Suspect]
     Dosage: 24 UNITS IN AM AND 28 UNITS IN PM
     Route: 058
  4. RAMIPRIL [Concomitant]
     Indication: PROPHYLAXIS
     Dates: start: 20100101
  5. LEVOTHYROXINE SODIUM [Concomitant]
     Indication: THYROID DISORDER
     Dates: start: 19990101
  6. SOLOSTAR [Suspect]
  7. APIDRA [Suspect]
     Dosage: 6 UNITS IN AM (BREAKFAST, 6 UNITS LUNCH AND 6 UNITS DINNER)
     Route: 058
  8. SOLOSTAR [Suspect]
  9. CRESTOR [Concomitant]
     Dates: start: 20090101

REACTIONS (2)
  - HYPOGLYCAEMIA [None]
  - MEDICATION ERROR [None]
